FAERS Safety Report 6917483-5 (Version None)
Quarter: 2010Q3

REPORT INFORMATION
  Report Type: 
  Country: None (occurrence: None)
  Receive Date: 20100805
  Receipt Date: 20100726
  Transmission Date: 20110219
  Serious: Yes (Other)
  Sender: FDA-Public Use
  Company Number: IND1-US-2010-0075

PATIENT
  Age: 8 Year
  Sex: Male

DRUGS (4)
  1. INDOMETHACIN [Suspect]
     Indication: JUVENILE ARTHRITIS
     Dosage: 16.5 ML (5.5 ML, 3 IN 1 D), ORAL
     Route: 048
     Dates: start: 20081101
  2. METHOTREXATE SODIUM [Suspect]
     Indication: JUVENILE ARTHRITIS
     Dosage: (25 MG, WEEKLY), SUBCUTANEOUS
     Route: 058
     Dates: start: 20090901
  3. HUMIRA [Suspect]
     Indication: JUVENILE ARTHRITIS
     Dosage: (40 MG, EVERY OTHER WEEK), SUBCUTANEOUS
     Route: 058
     Dates: start: 20100201
  4. ZANTAC [Suspect]
     Indication: PRODUCT USED FOR UNKNOWN INDICATION
     Dosage: 9 ML (3 ML, 3 IN 1 D), ORAL
     Route: 048
     Dates: start: 20081101

REACTIONS (4)
  - BLEPHAROSPASM [None]
  - HEADACHE [None]
  - NERVOUS SYSTEM DISORDER [None]
  - VOMITING [None]
